FAERS Safety Report 13347650 (Version 1)
Quarter: 2017Q1

REPORT INFORMATION
  Report Type: Spontaneous
  Country: ES (occurrence: ES)
  Receive Date: 20170317
  Receipt Date: 20170317
  Transmission Date: 20170428
  Serious: Yes (Hospitalization, Other)
  Sender: FDA-Public Use
  Company Number: ES-GILEAD-2017-0254908

PATIENT
  Age: 58 Year
  Sex: Female

DRUGS (10)
  1. BUSCAPINE [Concomitant]
     Active Substance: BUTYLSCOPOLAMINE
     Dosage: 10 MG, TID
     Dates: start: 20161215
  2. TRAMADOL. [Concomitant]
     Active Substance: TRAMADOL
     Dosage: 75 MG, TID
     Dates: start: 20161017
  3. PARIET [Concomitant]
     Active Substance: RABEPRAZOLE SODIUM
     Dosage: 20 MG, QD
     Dates: start: 20160920
  4. TENOFOVIR DISOPROXIL FUMARATE. [Suspect]
     Active Substance: TENOFOVIR DISOPROXIL FUMARATE
     Indication: CHRONIC HEPATITIS B
     Dosage: UNK
     Route: 065
     Dates: start: 20151030, end: 201612
  5. BUMETANIDE. [Concomitant]
     Active Substance: BUMETANIDE
     Dosage: 2 MG, BID
     Dates: start: 20161017
  6. SPIRONOLACTONE. [Concomitant]
     Active Substance: SPIRONOLACTONE
     Dosage: 100 MBQ, QD
     Dates: start: 20161121
  7. CALCIUM CARBONATE. [Concomitant]
     Active Substance: CALCIUM CARBONATE
     Dosage: 2.5G/CHOLECALCIFEROL 880UI
     Dates: start: 20160916
  8. FEBUXOSTAT. [Concomitant]
     Active Substance: FEBUXOSTAT
     Dosage: 80 MG, BID
     Dates: start: 20161031
  9. ALENDRONIC ACID [Concomitant]
     Active Substance: ALENDRONIC ACID
     Dosage: 70 MG, Q1WK
     Dates: start: 20160916
  10. BISOPROLOL [Concomitant]
     Active Substance: BISOPROLOL
     Dosage: 2.5 MG, QD
     Dates: start: 20161031

REACTIONS (3)
  - Pyelonephritis acute [Recovered/Resolved]
  - Renal impairment [Recovered/Resolved]
  - Hypophosphataemia [Recovered/Resolved]

NARRATIVE: CASE EVENT DATE: 20161216
